FAERS Safety Report 21635303 (Version 1)
Quarter: 2022Q4

REPORT INFORMATION
  Report Type: Spontaneous
  Country: US (occurrence: None)
  Receive Date: 20221123
  Receipt Date: 20221123
  Transmission Date: 20230113
  Serious: Yes (Other)
  Sender: FDA-Public Use
  Company Number: None

PATIENT
  Age: 67 Year
  Sex: Female
  Weight: 67.05 kg

DRUGS (22)
  1. AXICABTAGENE CILOLEUCEL [Suspect]
     Active Substance: AXICABTAGENE CILOLEUCEL
     Indication: Follicular lymphoma
     Dosage: 68 ML ONCE INTRAVENOUS DRIP?
     Route: 041
     Dates: start: 20220828, end: 20220828
  2. ALBUTEROL SULFATE [Concomitant]
     Active Substance: ALBUTEROL SULFATE
     Dates: end: 20220829
  3. ALENDRONATE [Concomitant]
     Active Substance: ALENDRONATE SODIUM
     Dates: start: 20220828, end: 20220828
  4. CHLORHEXIDINE [Concomitant]
     Active Substance: CHLORHEXIDINE
     Dates: start: 20220822, end: 20220901
  5. CIPROFLOXACIN [Concomitant]
     Active Substance: CIPROFLOXACIN
     Dates: start: 20220822, end: 20220827
  6. DOCUSATE SODIUM [Concomitant]
     Active Substance: DOCUSATE SODIUM
     Dates: start: 20220824, end: 20220902
  7. ENOXAPARIN [Concomitant]
     Active Substance: ENOXAPARIN
     Dates: start: 20220822, end: 20220902
  8. FLUCONAZOLE [Concomitant]
     Active Substance: FLUCONAZOLE
     Dates: start: 20220822, end: 20220902
  9. FLUTICASONE [Concomitant]
     Active Substance: FLUTICASONE
     Dates: start: 20220822, end: 20220902
  10. GABAPENTIN [Concomitant]
     Active Substance: GABAPENTIN
     Dates: start: 20220822, end: 20220901
  11. INSULIN NOS [Concomitant]
     Active Substance: INSULIN NOS
     Dates: start: 20220822, end: 20220901
  12. LEVOTHYROXINE [Concomitant]
     Active Substance: LEVOTHYROXINE
     Dates: start: 20220822, end: 20220902
  13. MAGNESIUM [Concomitant]
     Active Substance: MAGNESIUM
     Dates: start: 20220824, end: 20220826
  14. METOPROLOL [Concomitant]
     Active Substance: METOPROLOL
     Dates: start: 20220823, end: 20220902
  15. BENICAR HCT [Concomitant]
     Active Substance: HYDROCHLOROTHIAZIDE\OLMESARTAN MEDOXOMIL
     Dates: start: 20220822, end: 20220902
  16. OXYCODONE [Concomitant]
     Active Substance: OXYCODONE
     Dates: start: 20220827, end: 20220901
  17. PANTOPRAZOLE [Concomitant]
     Active Substance: PANTOPRAZOLE
     Dates: start: 20220827, end: 20220902
  18. ZOSYN [Concomitant]
     Active Substance: PIPERACILLIN SODIUM\TAZOBACTAM SODIUM
     Dates: start: 20220827, end: 20220828
  19. POLYETHYLENE GLYCOL [Concomitant]
     Active Substance: POLYETHYLENE GLYCOL
     Dates: end: 20220902
  20. POTASSIUM [Concomitant]
     Active Substance: POTASSIUM
     Dates: start: 20220822, end: 20220901
  21. supersaturated calcium phosphate rinse [Concomitant]
     Dates: start: 20220822, end: 20220902
  22. TRAMADOL [Concomitant]
     Active Substance: TRAMADOL
     Dates: start: 20220827, end: 20220827

REACTIONS (2)
  - Cytokine release syndrome [None]
  - Infusion related reaction [None]

NARRATIVE: CASE EVENT DATE: 20220828
